FAERS Safety Report 8290810-5 (Version None)
Quarter: 2012Q2

REPORT INFORMATION
  Report Type: 
  Country: None (occurrence: None)
  Receive Date: 20120417
  Receipt Date: 20110321
  Transmission Date: 20120825
  Serious: Yes (Other)
  Sender: FDA-Public Use
  Company Number: US-BRISTOL-MYERS SQUIBB COMPANY-15621774

PATIENT
  Age: 76 Year
  Sex: Female
  Weight: 51 kg

DRUGS (3)
  1. HYDREA [Suspect]
  2. TYLENOL (CAPLET) [Concomitant]
     Dosage: SOMETIMES
  3. FIORICET [Concomitant]

REACTIONS (5)
  - HYPERKERATOSIS [None]
  - MUCOUS MEMBRANE DISORDER [None]
  - WEIGHT DECREASED [None]
  - COUGH [None]
  - CHOKING [None]
